FAERS Safety Report 4712760-0 (Version None)
Quarter: 2005Q3

REPORT INFORMATION
  Report Type: 
  Country: None (occurrence: None)
  Receive Date: 20050701
  Receipt Date: 20041222
  Transmission Date: 20060218
  Serious: Yes (Other)
  Sender: FDA-Public Use
  Company Number: 2004118945

PATIENT
  Sex: Male

DRUGS (9)
  1. ZOLOFT [Suspect]
     Indication: ILL-DEFINED DISORDER
     Dosage: 150 MG, ORAL
     Route: 048
     Dates: start: 20041211
  2. ZIDOVUDINE W/LAMIDINE (LAMIVUDINE, ZIDOVUDINE) [Concomitant]
  3. PERPHENAZINE [Concomitant]
  4. MULTIVITAMINS (ASCORBIC ACID, ERGOCALCIFEROL, FOLIC ACID, NICOTINAMIDE [Concomitant]
  5. NEVIRAPINE [Concomitant]
  6. DRONABINOL [Concomitant]
  7. CALCIUM CARBONATE (CALCIUM CARBONATE) [Concomitant]
  8. LORAZEPAM [Concomitant]
  9. OLANZAPINE [Concomitant]

REACTIONS (1)
  - HYPERTENSION [None]
